FAERS Safety Report 19397857 (Version 2)
Quarter: 2021Q3

REPORT INFORMATION
  Report Type: Spontaneous
  Country: US (occurrence: US)
  Receive Date: 20210610
  Receipt Date: 20210810
  Transmission Date: 20211014
  Serious: Yes (Congenital Anomaly, Other)
  Sender: FDA-Public Use
  Company Number: NVSC2021US127412

PATIENT
  Age: 8 Month
  Sex: Male
  Weight: 1.36 kg

DRUGS (1)
  1. METHOTREXATE. [Suspect]
     Active Substance: METHOTREXATE
     Indication: FOETAL EXPOSURE DURING PREGNANCY
     Dosage: UNK, UNKNOWN (MATERNA DOSE: UNKNOWN)
     Route: 064

REACTIONS (8)
  - Foetal exposure during pregnancy [Unknown]
  - Clinodactyly [Unknown]
  - Low set ears [Unknown]
  - Synostosis [Unknown]
  - High arched palate [Unknown]
  - Premature baby [Unknown]
  - Foetal growth restriction [Unknown]
  - Skull malformation [Unknown]
